FAERS Safety Report 4598374-4 (Version None)
Quarter: 2005Q1

REPORT INFORMATION
  Report Type: 
  Country: None (occurrence: None)
  Receive Date: 20050304
  Receipt Date: 20050228
  Transmission Date: 20050727
  Serious: Yes (Hospitalization, Other)
  Sender: FDA-Public Use
  Company Number: US-JNJFOC-20050102571

PATIENT
  Sex: Male
  Weight: 28.12 kg

DRUGS (5)
  1. CONCERTA [Suspect]
     Route: 049
     Dates: start: 20040101
  2. CONCERTA [Suspect]
     Route: 049
     Dates: start: 20040101
  3. CONCERTA [Suspect]
     Route: 049
     Dates: start: 20040101
  4. SEROQUEL [Concomitant]
     Indication: BIPOLAR DISORDER
  5. TRAZODONE HCL [Concomitant]
     Indication: BIPOLAR DISORDER
     Dosage: AT BEDTIME

REACTIONS (8)
  - ANOREXIA [None]
  - BRAIN DAMAGE [None]
  - HEADACHE [None]
  - MIGRAINE [None]
  - NAUSEA [None]
  - PYREXIA [None]
  - URINARY RETENTION [None]
  - VOMITING [None]
